FAERS Safety Report 9055431 (Version 1)
Quarter: 2013Q1

REPORT INFORMATION
  Report Type: Spontaneous
  Country: US (occurrence: US)
  Receive Date: 20130206
  Receipt Date: 20130206
  Transmission Date: 20140127
  Serious: Yes (Other)
  Sender: FDA-Public Use
  Company Number: US-GLAXOSMITHKLINE-A1010719A

PATIENT
  Age: 30 Year
  Sex: Male

DRUGS (1)
  1. ABREVA [Suspect]
     Indication: ORAL HERPES
     Route: 061
     Dates: start: 20130131, end: 20130202

REACTIONS (6)
  - Application site infection [Not Recovered/Not Resolved]
  - Application site pain [Not Recovered/Not Resolved]
  - Application site irritation [Not Recovered/Not Resolved]
  - Oral herpes [Not Recovered/Not Resolved]
  - Condition aggravated [Not Recovered/Not Resolved]
  - Drug ineffective [Unknown]
